FAERS Safety Report 25430063 (Version 2)
Quarter: 2025Q3

REPORT INFORMATION
  Report Type: Spontaneous
  Country: US (occurrence: US)
  Receive Date: 20250612
  Receipt Date: 20250715
  Transmission Date: 20251021
  Serious: No
  Sender: SCIEGEN PHARMACEUTICALS INC
  Company Number: US-SCIEGENP-2025SCSPO00129

PATIENT
  Sex: Female

DRUGS (1)
  1. BUPROPION HYDROCHLORIDE [Suspect]
     Active Substance: BUPROPION HYDROCHLORIDE
     Indication: Affective disorder
     Route: 065

REACTIONS (10)
  - Brain fog [Unknown]
  - Feeling abnormal [Unknown]
  - Thinking abnormal [Unknown]
  - Cognitive disorder [Unknown]
  - Confusional state [Unknown]
  - Amnesia [Unknown]
  - Depression [Unknown]
  - Neuropsychological symptoms [Unknown]
  - Drug ineffective [Unknown]
  - Product quality issue [Unknown]
